FAERS Safety Report 5171407-2 (Version None)
Quarter: 2006Q4

REPORT INFORMATION
  Report Type: 
  Country: None (occurrence: None)
  Receive Date: 20061213
  Receipt Date: 20060403
  Transmission Date: 20070319
  Serious: Yes (Life-Threatening, Hospitalization)
  Sender: FDA-Public Use
  Company Number: US-AMGEN-US175007

PATIENT
  Sex: Male
  Weight: 85.4 kg

DRUGS (4)
  1. ENBREL [Suspect]
     Indication: RHEUMATOID ARTHRITIS
     Route: 058
     Dates: start: 20020101, end: 20060101
  2. PREVACID [Concomitant]
  3. MOBIC [Concomitant]
  4. ACTONEL [Concomitant]

REACTIONS (1)
  - STAPHYLOCOCCAL SEPSIS [None]
